FAERS Safety Report 6577568-2 (Version None)
Quarter: 2010Q1

REPORT INFORMATION
  Report Type: 
  Country: None (occurrence: None)
  Receive Date: 20100211
  Receipt Date: 20100209
  Transmission Date: 20100710
  Serious: Yes (Hospitalization)
  Sender: FDA-Public Use
  Company Number: DE-PURDUE-DEU_2009_0004951

PATIENT
  Age: 70 Year
  Sex: Male

DRUGS (7)
  1. THEOPHYLLINE [Suspect]
     Indication: CHRONIC OBSTRUCTIVE PULMONARY DISEASE
     Dosage: 200 MG, SINGLE
     Route: 042
     Dates: start: 20080820, end: 20080820
  2. BRONCHORETARD [Interacting]
     Indication: CHRONIC OBSTRUCTIVE PULMONARY DISEASE
     Dosage: 300 MG, BID
     Route: 048
  3. VIANI [Concomitant]
  4. ATROVENT [Concomitant]
  5. FALICARD [Concomitant]
  6. AMARYL [Concomitant]
  7. LYRICA [Concomitant]

REACTIONS (1)
  - TACHYARRHYTHMIA [None]
